FAERS Safety Report 11543297 (Version 2)
Quarter: 2015Q4

REPORT INFORMATION
  Report Type: Spontaneous
  Country: US (occurrence: None)
  Receive Date: 20150923
  Receipt Date: 20151015
  Transmission Date: 20160304
  Serious: Yes (Other)
  Sender: FDA-Public Use
  Company Number: ADR-2015-00389

PATIENT
  Age: 60 Year
  Sex: Male

DRUGS (2)
  1. BACLOFEN INTRATHECAL - 60.0 MCG/ML [Suspect]
     Active Substance: BACLOFEN
     Indication: SPINAL PAIN
     Dosage: 27.304 MCG/DAY
  2. BUPIVACAINE INTRATHECAL - 16.0 MG/ML [Suspect]
     Active Substance: BUPIVACAINE
     Indication: SPINAL PAIN
     Dosage: 7.281 MG/DAY

REACTIONS (1)
  - Thrombosis [None]
